FAERS Safety Report 5093484-X (Version None)
Quarter: 2006Q3

REPORT INFORMATION
  Report Type: 
  Country: None (occurrence: None)
  Receive Date: 20060728
  Receipt Date: 20050921
  Transmission Date: 20061208
  Serious: Yes (Other)
  Sender: FDA-Public Use
  Company Number: US-JNJFOC-20050906099

PATIENT
  Age: 2 Month
  Sex: Male

DRUGS (1)
  1. CONCENTRATED MOTRIN INFANTS' DYE-FREE (IBUPROFEN) DROPS [Suspect]
     Indication: PYREXIA
     Dosage: 32 MG,ORAL
     Route: 048
     Dates: start: 20050921, end: 20050921

REACTIONS (2)
  - HYPERSENSITIVITY [None]
  - OFF LABEL USE [None]
